FAERS Safety Report 4479379-0 (Version None)
Quarter: 2004Q4

REPORT INFORMATION
  Report Type: 
  Country: None (occurrence: None)
  Receive Date: 20041015
  Receipt Date: 20040927
  Transmission Date: 20050328
  Serious: Yes (Death)
  Sender: FDA-Public Use
  Company Number: 2004236037US

PATIENT
  Age: 42 Year
  Sex: 0

DRUGS (3)
  1. DILTIZEN (DILTIAZEM HYDROCHLORIDE) TABLET, EXTENDED RELEASE [Suspect]
  2. XANAX [Suspect]
  3. ETHANOL (ETHANOL) [Suspect]

REACTIONS (3)
  - BLOOD ETHANOL INCREASED [None]
  - COMPLETED SUICIDE [None]
  - MULTIPLE DRUG OVERDOSE INTENTIONAL [None]
